FAERS Safety Report 4372683-6 (Version None)
Quarter: 2004Q2

REPORT INFORMATION
  Report Type: 
  Country: None (occurrence: None)
  Receive Date: 20040608
  Receipt Date: 20040528
  Transmission Date: 20050107
  Serious: Yes (Other)
  Sender: FDA-Public Use
  Company Number: NSADSS2002037859

PATIENT
  Sex: Female
  Weight: 54.89 kg

DRUGS (13)
  1. REMICADE [Suspect]
     Indication: RHEUMATOID ARTHRITIS
     Route: 041
  2. REMICADE [Suspect]
     Indication: ANKYLOSING SPONDYLITIS
     Route: 041
  3. OXYCONTIN [Concomitant]
  4. REMERON [Concomitant]
  5. METHOTREXATE [Concomitant]
  6. LISINOPRIL [Concomitant]
  7. HYDROCHLOROTHIAZIDE [Concomitant]
  8. DIGOXIN [Concomitant]
  9. LOMOTIL [Concomitant]
  10. LOMOTIL [Concomitant]
  11. FOLATE [Concomitant]
  12. PREDNISONE [Concomitant]
  13. LIBRIUM [Concomitant]

REACTIONS (5)
  - ARTHRALGIA [None]
  - DYSPNOEA EXACERBATED [None]
  - PNEUMONITIS [None]
  - PYREXIA [None]
  - SYSTEMIC LUPUS ERYTHEMATOSUS [None]
